FAERS Safety Report 25660788 (Version 1)
Quarter: 2025Q3

REPORT INFORMATION
  Report Type: Spontaneous
  Country: AU (occurrence: AU)
  Receive Date: 20250808
  Receipt Date: 20250808
  Transmission Date: 20251021
  Serious: Yes (Other)
  Sender: RANBAXY
  Company Number: AU-SUN PHARMACEUTICAL INDUSTRIES LTD-2025R1-521131

PATIENT
  Sex: Male

DRUGS (11)
  1. TOPIRAMATE [Suspect]
     Active Substance: TOPIRAMATE
     Indication: Seizure
     Route: 065
  2. CARBAMAZEPINE [Suspect]
     Active Substance: CARBAMAZEPINE
     Indication: Seizure
     Route: 065
  3. FLUOXETINE [Suspect]
     Active Substance: FLUOXETINE HYDROCHLORIDE
     Indication: Product used for unknown indication
     Route: 065
  4. CANNABIDIOL [Concomitant]
     Active Substance: CANNABIDIOL
     Indication: Seizure
     Route: 065
  5. CLOBAZAM [Concomitant]
     Active Substance: CLOBAZAM
     Indication: Epilepsy
     Route: 065
  6. LAMOTRIGINE [Concomitant]
     Active Substance: LAMOTRIGINE
     Indication: Epilepsy
     Route: 065
  7. PHENOBARBITAL [Concomitant]
     Active Substance: PHENOBARBITAL
     Indication: Epilepsy
     Route: 065
  8. RUFINAMIDE [Concomitant]
     Active Substance: RUFINAMIDE
     Indication: Epilepsy
     Route: 065
  9. VALPROATE SODIUM [Concomitant]
     Active Substance: VALPROATE SODIUM
     Indication: Seizure
     Route: 065
  10. ZONISAMIDE [Concomitant]
     Active Substance: ZONISAMIDE
     Indication: Epilepsy
     Route: 065
  11. ZONISAMIDE [Concomitant]
     Active Substance: ZONISAMIDE
     Route: 065

REACTIONS (1)
  - Intellectual disability [Unknown]
